FAERS Safety Report 6666569-1 (Version None)
Quarter: 2010Q2

REPORT INFORMATION
  Report Type: 
  Country: None (occurrence: None)
  Receive Date: 20100404
  Receipt Date: 20100303
  Transmission Date: 20101027
  Serious: No
  Sender: FDA-Public Use
  Company Number: US-BAYER-201012748BCC

PATIENT
  Sex: Female

DRUGS (1)
  1. ALEVE (CAPLET) [Suspect]
     Indication: HEADACHE
     Dosage: AS USED: 440/220 MG  UNIT DOSE: 220 MG
     Route: 048
     Dates: start: 20100303

REACTIONS (1)
  - HEADACHE [None]
